FAERS Safety Report 8647836 (Version 2)
Quarter: 2013Q1

REPORT INFORMATION
  Report Type: Spontaneous
  Country: US (occurrence: US)
  Receive Date: 20120703
  Receipt Date: 20130204
  Transmission Date: 20140127
  Serious: Yes (Disabling, Other)
  Sender: FDA-Public Use
  Company Number: US-PERRIGO-12US005538

PATIENT
  Age: 55 Year
  Sex: Female
  Weight: 68.03 kg

DRUGS (4)
  1. TRIAMCINOLONE ACETONIDE RX 0.1% 2F8 [Suspect]
     Indication: VULVOVAGINAL DISCOMFORT
     Dosage: ONE APPLICATION, DAILY
     Route: 067
     Dates: start: 20110506, end: 20110515
  2. LYRICA [Concomitant]
     Indication: NEURALGIA
     Dosage: UNK
     Route: 048
  3. EFFEXOR [Concomitant]
     Indication: MENOPAUSE
     Dosage: UNK
     Route: 048
  4. HYDROCHLOROTHIAZIDE [Concomitant]
     Indication: FLUID RETENTION
     Dosage: UNK
     Route: 048

REACTIONS (17)
  - Incorrect route of drug administration [Unknown]
  - Vaginal inflammation [Not Recovered/Not Resolved]
  - Vulvovaginal pain [Not Recovered/Not Resolved]
  - Vulvovaginal erythema [Recovered/Resolved]
  - Malaise [Recovered/Resolved]
  - Pain in extremity [Not Recovered/Not Resolved]
  - Muscle spasms [Not Recovered/Not Resolved]
  - Vulvovaginal burning sensation [Recovered/Resolved]
  - Atrophic vulvovaginitis [Not Recovered/Not Resolved]
  - Cystitis [Recovering/Resolving]
  - Dyspareunia [Not Recovered/Not Resolved]
  - Muscle tightness [Not Recovered/Not Resolved]
  - Pain [Unknown]
  - Back pain [Not Recovered/Not Resolved]
  - Musculoskeletal pain [Not Recovered/Not Resolved]
  - Gynaecological examination abnormal [Unknown]
  - Nerve injury [Not Recovered/Not Resolved]
